FAERS Safety Report 23359033 (Version 2)
Quarter: 2024Q1

REPORT INFORMATION
  Report Type: Report from Study
  Country: IL (occurrence: IL)
  Receive Date: 20240102
  Receipt Date: 20240207
  Transmission Date: 20240410
  Serious: Yes (Other)
  Sender: FDA-Public Use
  Company Number: IL-KARYOPHARM-2023KPT002335

PATIENT
  Age: 68 Year
  Sex: Female
  Weight: 61 kg

DRUGS (3)
  1. SELINEXOR [Suspect]
     Active Substance: SELINEXOR
     Indication: Plasma cell myeloma
     Dosage: 40 MG, WEEKLY
     Dates: start: 202106, end: 202312
  2. DEXAMETHASONE [Concomitant]
     Active Substance: DEXAMETHASONE
     Indication: Plasma cell myeloma
  3. POMALIDOMIDE [Concomitant]
     Active Substance: POMALIDOMIDE
     Indication: Plasma cell myeloma

REACTIONS (2)
  - Osteonecrosis [Not Recovered/Not Resolved]
  - Osteoporosis [Unknown]

NARRATIVE: CASE EVENT DATE: 20230101
